FAERS Safety Report 21906035 (Version 1)
Quarter: 2023Q1

REPORT INFORMATION
  Report Type: Spontaneous
  Country: CN (occurrence: CN)
  Receive Date: 20230124
  Receipt Date: 20230124
  Transmission Date: 20230418
  Serious: Yes (Other)
  Sender: FDA-Public Use
  Company Number: None

PATIENT
  Age: 47 Year
  Sex: Male

DRUGS (8)
  1. CYCLOPHOSPHAMIDE [Suspect]
     Active Substance: CYCLOPHOSPHAMIDE
     Indication: Angioimmunoblastic T-cell lymphoma stage IV
     Dosage: 1.2 G, QD, SEVENTH CYCLE OF CHEMOTHERAPY
     Route: 042
     Dates: start: 20221215, end: 20221215
  2. CYCLOPHOSPHAMIDE [Suspect]
     Active Substance: CYCLOPHOSPHAMIDE
     Indication: Chemotherapy
  3. ETOPOSIDE [Suspect]
     Active Substance: ETOPOSIDE
     Indication: Angioimmunoblastic T-cell lymphoma stage IV
     Dosage: 0.1 G, QD, SEVENTH CYCLE OF CHEMOTHERAPY
     Route: 041
     Dates: start: 20221215, end: 20221217
  4. ETOPOSIDE [Suspect]
     Active Substance: ETOPOSIDE
     Indication: Chemotherapy
  5. VINCRISTINE SULFATE [Suspect]
     Active Substance: VINCRISTINE SULFATE
     Indication: Angioimmunoblastic T-cell lymphoma stage IV
     Dosage: 2 MG, QD, SEVENTH CYCLE OF CHEMOTHERAPY
     Route: 042
     Dates: start: 20221215, end: 20221215
  6. VINCRISTINE SULFATE [Suspect]
     Active Substance: VINCRISTINE SULFATE
     Indication: Chemotherapy
  7. DOXORUBICIN HYDROCHLORIDE [Suspect]
     Active Substance: DOXORUBICIN HYDROCHLORIDE
     Indication: Angioimmunoblastic T-cell lymphoma stage IV
     Dosage: 50 MG, QD, SEVENTH CYCLE OF CHEMOTHERAPY
     Route: 041
     Dates: start: 20221215, end: 20221215
  8. DOXORUBICIN HYDROCHLORIDE [Suspect]
     Active Substance: DOXORUBICIN HYDROCHLORIDE
     Indication: Chemotherapy

REACTIONS (6)
  - Angioimmunoblastic T-cell lymphoma stage IV [Unknown]
  - Condition aggravated [Unknown]
  - Erythropenia [Unknown]
  - White blood cell count decreased [Unknown]
  - Myelosuppression [Unknown]
  - Hiccups [Unknown]

NARRATIVE: CASE EVENT DATE: 20221218
